FAERS Safety Report 7279256-6 (Version None)
Quarter: 2011Q1

REPORT INFORMATION
  Report Type: 
  Country: None (occurrence: None)
  Receive Date: 20110207
  Receipt Date: 20110124
  Transmission Date: 20110831
  Serious: Yes (Other)
  Sender: FDA-Public Use
  Company Number: US-CELGENEUS-163-21880-11012596

PATIENT
  Sex: Female

DRUGS (3)
  1. REVLIMID [Suspect]
     Route: 048
     Dates: start: 20070401, end: 20070101
  2. REVLIMID [Suspect]
     Route: 048
     Dates: start: 20070101, end: 20070101
  3. REVLIMID [Suspect]
     Route: 048
     Dates: start: 20070801

REACTIONS (1)
  - DISEASE COMPLICATION [None]
